FAERS Safety Report 7032469-0 (Version None)
Quarter: 2010Q4

REPORT INFORMATION
  Report Type: 
  Country: None (occurrence: None)
  Receive Date: 20101007
  Receipt Date: 20100628
  Transmission Date: 20110411
  Serious: No
  Sender: FDA-Public Use
  Company Number: GB-BRISTOL-MYERS SQUIBB COMPANY-15192305

PATIENT
  Age: 61 Year
  Sex: Male
  Weight: 114 kg

DRUGS (14)
  1. CETUXIMAB [Suspect]
     Indication: HEAD AND NECK CANCER
     Dosage: RECEIVED ON 28JUN10
     Route: 042
     Dates: start: 20100621, end: 20100621
  2. LANSOPRAZOLE [Concomitant]
     Indication: PROPHYLAXIS
  3. LEVOTHYROXINE [Concomitant]
  4. SENNA [Concomitant]
     Route: 048
  5. FUROSEMIDE [Concomitant]
     Route: 048
  6. THIAMINE HCL [Concomitant]
     Route: 048
  7. MULTI-VITAMINS [Concomitant]
     Indication: PROPHYLAXIS
     Dosage: 2 DF = 2 UNITS NOS
     Route: 048
  8. LACTULOSE [Concomitant]
     Indication: PROPHYLAXIS
     Route: 048
  9. VITAMIN B COMPLEX CAP [Concomitant]
     Dosage: TAB
     Route: 048
  10. CITALOPRAM HYDROBROMIDE [Concomitant]
     Route: 048
  11. GABAPENTIN [Concomitant]
     Route: 048
  12. ADCAL-D3 [Concomitant]
     Route: 048
  13. METOCLOPRAMIDE [Concomitant]
     Indication: PROPHYLAXIS
     Route: 048
  14. CHLORHEXIDINE GLUCONATE [Concomitant]
     Indication: PROPHYLAXIS
     Dosage: MOUTHWASH
     Route: 048

REACTIONS (1)
  - HYPOKALAEMIA [None]
